FAERS Safety Report 6765775-5 (Version None)
Quarter: 2010Q2

REPORT INFORMATION
  Report Type: 
  Country: None (occurrence: None)
  Receive Date: 20100611
  Receipt Date: 20100604
  Transmission Date: 20101027
  Serious: Yes (Death, Hospitalization)
  Sender: FDA-Public Use
  Company Number: JP-ROCHE-695088

PATIENT
  Sex: Female

DRUGS (21)
  1. BEVACIZUMAB [Suspect]
     Indication: COLON CANCER METASTATIC
     Dosage: FORM: INJECTION
     Route: 041
     Dates: start: 20090625, end: 20091210
  2. BEVACIZUMAB [Suspect]
     Route: 041
     Dates: start: 20100107, end: 20100304
  3. CAMPTOSAR [Suspect]
     Indication: COLON CANCER METASTATIC
     Dosage: DRUG: CAMPTO(IRINOTECAN HYDROCHLORIDE), FORM: INJECTION
     Route: 041
     Dates: start: 20090625, end: 20091210
  4. CAMPTOSAR [Suspect]
     Route: 041
     Dates: start: 20100107, end: 20100121
  5. CAMPTOSAR [Suspect]
     Route: 041
     Dates: start: 20100204, end: 20100304
  6. FLUOROURACIL [Suspect]
     Indication: COLON CANCER METASTATIC
     Dosage: DRUG: 5-FU(FLUOROURACIL), FORM: INJECTION
     Route: 040
     Dates: start: 20090625, end: 20091210
  7. FLUOROURACIL [Suspect]
     Route: 040
     Dates: start: 20090625, end: 20091201
  8. FLUOROURACIL [Suspect]
     Route: 040
     Dates: start: 20100107, end: 20100121
  9. FLUOROURACIL [Suspect]
     Route: 040
     Dates: start: 20100107, end: 20100101
  10. FLUOROURACIL [Suspect]
     Route: 040
     Dates: start: 20100204, end: 20100304
  11. FLUOROURACIL [Suspect]
     Route: 040
     Dates: start: 20100204, end: 20100301
  12. ISOVORIN [Suspect]
     Indication: COLON CANCER METASTATIC
     Dosage: DRUG: ISOVORIN(LEVOFOLINATE CALCIUM), FORM: INJECTION
     Route: 041
     Dates: start: 20090625, end: 20091210
  13. ISOVORIN [Suspect]
     Route: 041
     Dates: start: 20100107, end: 20100304
  14. COVERSYL [Concomitant]
     Route: 048
     Dates: start: 20090226
  15. CYTOTEC [Concomitant]
     Route: 048
     Dates: start: 20100225
  16. MYONAL [Concomitant]
     Route: 048
     Dates: start: 20100218
  17. MAGNESIUM OXIDE [Concomitant]
     Route: 048
     Dates: start: 20081112
  18. PURSENNID [Concomitant]
     Route: 048
     Dates: start: 20091001
  19. KETOPROFEN [Concomitant]
     Dosage: DOSE FORM: TAPE, NOTE: DOSE ADJUSTED: UNCERTAIN DOSE
     Route: 061
     Dates: start: 20100218
  20. LOBU [Concomitant]
     Route: 048
     Dates: start: 20100204
  21. SOLANAX [Concomitant]
     Dosage: NOTE: TAKEN AS NEEDED
     Route: 048
     Dates: start: 20100204

REACTIONS (2)
  - DECREASED APPETITE [None]
  - DISEASE PROGRESSION [None]
